FAERS Safety Report 11875766 (Version 2)
Quarter: 2017Q2

REPORT INFORMATION
  Report Type: Spontaneous
  Country: JP (occurrence: JP)
  Receive Date: 20151229
  Receipt Date: 20170530
  Transmission Date: 20170829
  Serious: Yes (Other)
  Sender: FDA-Public Use
  Company Number: JP-SA-2015SA218842

PATIENT
  Age: 81 Year
  Sex: Male
  Weight: 55 kg

DRUGS (8)
  1. 5-FU [Concomitant]
     Active Substance: FLUOROURACIL
     Dosage: CONTINUOUS INFUSION (TOTAL OF 6 CYCLES)
     Route: 042
  2. LEVOFOLINATE [Suspect]
     Active Substance: LEVOLEUCOVORIN CALCIUM
     Indication: RECTAL CANCER
     Dosage: INJECTION
     Route: 041
  3. LEVOFOLINATE [Suspect]
     Active Substance: LEVOLEUCOVORIN CALCIUM
     Indication: RECTAL CANCER
     Dosage: INJECTION
     Route: 041
  4. 5-FU [Concomitant]
     Active Substance: FLUOROURACIL
     Dosage: CONTINUOUS INFUSION (TOTAL OF 6 CYCLES)
     Route: 042
  5. ELPLAT [Suspect]
     Active Substance: OXALIPLATIN
     Indication: RECTAL CANCER
     Dosage: INJECTION
     Route: 041
  6. ELPLAT [Suspect]
     Active Substance: OXALIPLATIN
     Indication: RECTAL CANCER
     Dosage: INJECTION
     Route: 041
  7. 5-FU [Concomitant]
     Active Substance: FLUOROURACIL
     Dosage: BOLUS
     Route: 040
  8. 5-FU [Concomitant]
     Active Substance: FLUOROURACIL
     Dosage: CONTINUOUS INFUSION (TOTAL OF 6 CYCLES)
     Route: 042

REACTIONS (7)
  - Neutrophil count decreased [Recovering/Resolving]
  - Decreased appetite [Unknown]
  - Disseminated intravascular coagulation [Recovering/Resolving]
  - Subcutaneous abscess [Recovering/Resolving]
  - Tumour perforation [Recovering/Resolving]
  - White blood cell count decreased [Unknown]
  - Anaemia [Unknown]
